FAERS Safety Report 12836285 (Version 1)
Quarter: 2016Q4

REPORT INFORMATION
  Report Type: Spontaneous
  Country: CN (occurrence: CN)
  Receive Date: 20161011
  Receipt Date: 20161011
  Transmission Date: 20170207
  Serious: Yes (Death, Hospitalization)
  Sender: FDA-Public Use
  Company Number: CN-INGENUS PHARMACEUTICALS NJ, LLC-ING201609-000060

PATIENT
  Age: 83 Year
  Sex: Female

DRUGS (2)
  1. PROBENECID AND COLCHICINE [Suspect]
     Active Substance: COLCHICINE\PROBENECID
     Indication: GOUTY ARTHRITIS
     Route: 048
  2. CLARITHROMYCIN. [Interacting]
     Active Substance: CLARITHROMYCIN
     Route: 048

REACTIONS (4)
  - Toxicity to various agents [Fatal]
  - Cardiac arrest [Unknown]
  - Drug interaction [Fatal]
  - Platelet count decreased [Unknown]
